FAERS Safety Report 11842676 (Version 2)
Quarter: 2016Q2

REPORT INFORMATION
  Report Type: Spontaneous
  Country: HR (occurrence: HR)
  Receive Date: 20151216
  Receipt Date: 20160411
  Transmission Date: 20160815
  Serious: Yes (Other)
  Sender: FDA-Public Use
  Company Number: HR-GLAXOSMITHKLINE-HR2014GSK054991

PATIENT
  Age: 77 Year
  Sex: Male

DRUGS (11)
  1. PREDUCTAL MR [Concomitant]
     Active Substance: TRIMETAZIDINE DIHYDROCHLORIDE
     Route: 048
  2. TRITACE [Concomitant]
     Active Substance: RAMIPRIL
     Route: 048
  3. LIPEX [Concomitant]
     Active Substance: SIMVASTATIN
     Route: 048
  4. MONOPIN [Concomitant]
     Route: 048
  5. OMACOR [Suspect]
     Active Substance: OMEGA-3-ACID ETHYL ESTERS
     Indication: CORONARY ARTERY BYPASS
     Dosage: 1000 MG, 1D
     Route: 048
     Dates: start: 20141029
  6. POTASSIUM CHLORIDE. [Concomitant]
     Active Substance: POTASSIUM CHLORIDE
     Route: 048
  7. DORETA [Concomitant]
     Route: 048
  8. FUROSEMIDE. [Concomitant]
     Active Substance: FUROSEMIDE
     Route: 048
  9. OMACOR [Suspect]
     Active Substance: OMEGA-3-ACID ETHYL ESTERS
     Indication: CORONARY ARTERY BYPASS
     Dosage: 1000 MG, 1D
     Route: 048
     Dates: start: 201002, end: 20141022
  10. OMEGA-3-ACID ETHYL ESTERS. [Suspect]
     Active Substance: OMEGA-3-ACID ETHYL ESTERS
     Indication: CORONARY ARTERY BYPASS
     Dosage: 1000 MG, 1D
     Route: 048
     Dates: start: 20141022, end: 20141029
  11. TONOCARDIN [Concomitant]
     Route: 048

REACTIONS (2)
  - Gastrointestinal haemorrhage [Recovered/Resolved]
  - Off label use [Not Recovered/Not Resolved]
